FAERS Safety Report 5489265-5 (Version None)
Quarter: 2007Q4

REPORT INFORMATION
  Report Type: 
  Country: None (occurrence: None)
  Receive Date: 20071018
  Receipt Date: 20071011
  Transmission Date: 20080405
  Serious: Yes (Hospitalization)
  Sender: FDA-Public Use
  Company Number: PL-AVENTIS-200719424GDDC

PATIENT
  Age: 55 Year
  Sex: Female
  Weight: 59 kg

DRUGS (2)
  1. ARAVA [Suspect]
     Indication: RHEUMATOID ARTHRITIS
     Route: 048
     Dates: start: 20050301, end: 20051201
  2. ENCORTON [Concomitant]
     Indication: RHEUMATOID ARTHRITIS
     Dates: start: 20010101

REACTIONS (1)
  - FACTOR XII DEFICIENCY [None]
